FAERS Safety Report 12730181 (Version 2)
Quarter: 2016Q3

REPORT INFORMATION
  Report Type: Spontaneous
  Country: US (occurrence: US)
  Receive Date: 20160909
  Receipt Date: 20160913
  Transmission Date: 20161109
  Serious: Yes (Hospitalization)
  Sender: FDA-Public Use
  Company Number: US-BEH-2016073310

PATIENT
  Sex: Female
  Weight: 86.17 kg

DRUGS (25)
  1. HIZENTRA [Suspect]
     Active Substance: HUMAN IMMUNOGLOBULIN G
     Indication: IMMUNODEFICIENCY COMMON VARIABLE
     Dosage: 10 G, QW
     Route: 058
     Dates: start: 20130807
  2. LIPITOR [Concomitant]
     Active Substance: ATORVASTATIN CALCIUM
  3. VITAMIN D3 [Concomitant]
     Active Substance: CHOLECALCIFEROL
  4. FISH OIL [Concomitant]
     Active Substance: FISH OIL
  5. BACTRIM DS [Concomitant]
     Active Substance: SULFAMETHOXAZOLE\TRIMETHOPRIM
  6. LEVAQUIN [Concomitant]
     Active Substance: LEVOFLOXACIN
  7. CLARITIN [Concomitant]
     Active Substance: LORATADINE
  8. FLUNISOLIDE. [Concomitant]
     Active Substance: FLUNISOLIDE
  9. ALBUTEROL                          /00139501/ [Concomitant]
     Active Substance: ALBUTEROL
  10. COENZYME Q10 [Concomitant]
     Active Substance: UBIDECARENONE
  11. ASTEPRO [Concomitant]
     Active Substance: AZELASTINE HYDROCHLORIDE
  12. DHEA [Concomitant]
     Active Substance: PRASTERONE
  13. ALBUTEROL                          /00139501/ [Concomitant]
     Active Substance: ALBUTEROL
  14. GLUCOSAMINE CHONDROITIN            /01430901/ [Concomitant]
  15. DIPHENHYDRAMINE. [Concomitant]
     Active Substance: DIPHENHYDRAMINE
  16. EPIPEN [Concomitant]
     Active Substance: EPINEPHRINE
  17. MUCINEX [Concomitant]
     Active Substance: GUAIFENESIN
  18. PLAQUENIL                          /00072602/ [Concomitant]
     Active Substance: HYDROXYCHLOROQUINE DIPHOSPHATE
  19. SKELAXIN [Concomitant]
     Active Substance: METAXALONE
  20. CEFTIN [Concomitant]
     Active Substance: CEFUROXIME AXETIL
  21. PREDNISONE. [Concomitant]
     Active Substance: PREDNISONE
  22. LEVSIN [Concomitant]
     Active Substance: HYOSCYAMINE SULFATE
  23. SYMBICORT [Concomitant]
     Active Substance: BUDESONIDE\FORMOTEROL FUMARATE DIHYDRATE
  24. BIAXIN [Concomitant]
     Active Substance: CLARITHROMYCIN
  25. BUDESONIDE. [Concomitant]
     Active Substance: BUDESONIDE

REACTIONS (5)
  - Bronchitis [Unknown]
  - Pharyngitis [Unknown]
  - Cardiac disorder [Unknown]
  - Dyspnoea [Unknown]
  - Chest pain [Unknown]
